FAERS Safety Report 7897885-3 (Version None)
Quarter: 2011Q4

REPORT INFORMATION
  Report Type: 
  Country: None (occurrence: None)
  Receive Date: 20111107
  Receipt Date: 20111028
  Transmission Date: 20120403
  Serious: Yes (Other)
  Sender: FDA-Public Use
  Company Number: PHHY2011FR82057

PATIENT
  Sex: Female
  Weight: 70 kg

DRUGS (1)
  1. ONBREZ [Suspect]
     Indication: BRONCHITIS CHRONIC
     Dosage: UNK
     Dates: start: 20110727, end: 20110810

REACTIONS (2)
  - SINUS TACHYCARDIA [None]
  - PALPITATIONS [None]
